FAERS Safety Report 13595737 (Version 2)
Quarter: 2019Q1

REPORT INFORMATION
  Report Type: Spontaneous
  Country: US (occurrence: US)
  Receive Date: 20170531
  Receipt Date: 20190121
  Transmission Date: 20190417
  Serious: No
  Sender: FDA-Public Use
  Company Number: US-JNJFOC-20170505663

PATIENT
  Age: 80 Year
  Sex: Female
  Weight: 61.24 kg

DRUGS (1)
  1. TYLENOL EXTRA STRENGTH [Suspect]
     Active Substance: ACETAMINOPHEN
     Indication: PAIN
     Dosage: 2 CAPLETS, ONE TIME
     Route: 048

REACTIONS (2)
  - Headache [Unknown]
  - Insomnia [Unknown]
